FAERS Safety Report 17572808 (Version 1)
Quarter: 2020Q1

REPORT INFORMATION
  Report Type: Spontaneous
  Country: US (occurrence: US)
  Receive Date: 20200317
  Receipt Date: 20200317
  Transmission Date: 20200409
  Serious: Yes (Death)
  Sender: FDA-Public Use
  Company Number: None

PATIENT
  Age: 65 Year
  Sex: Male
  Weight: 58.4 kg

DRUGS (2)
  1. CYTARABINE. [Suspect]
     Active Substance: CYTARABINE
     Dates: end: 20200130
  2. DAUNORUBICIN [Suspect]
     Active Substance: DAUNORUBICIN
     Dates: end: 20200126

REACTIONS (14)
  - Pyrexia [None]
  - Periorbital oedema [None]
  - Hypoaesthesia [None]
  - Sinus tachycardia [None]
  - Cough [None]
  - Swelling face [None]
  - Hypoaesthesia oral [None]
  - Fatigue [None]
  - Pleural effusion [None]
  - Pancytopenia [None]
  - Hypoxia [None]
  - Sinusitis [None]
  - Pneumonia [None]
  - Atrial fibrillation [None]

NARRATIVE: CASE EVENT DATE: 20200221
